FAERS Safety Report 24574762 (Version 1)
Quarter: 2024Q4

REPORT INFORMATION
  Report Type: Spontaneous
  Country: US (occurrence: US)
  Receive Date: 20241104
  Receipt Date: 20241104
  Transmission Date: 20250114
  Serious: No
  Sender: ELI LILLY AND COMPANY
  Company Number: US-ELI_LILLY_AND_COMPANY-US202410022001

PATIENT
  Age: 47 Year
  Sex: Female

DRUGS (1)
  1. VERZENIO [Suspect]
     Active Substance: ABEMACICLIB
     Indication: Breast cancer female
     Dosage: 150 MG, BID
     Route: 048

REACTIONS (21)
  - Somnolence [Unknown]
  - Flatulence [Unknown]
  - Abnormal faeces [Unknown]
  - Gastrointestinal sounds abnormal [Unknown]
  - Myalgia [Unknown]
  - Taste disorder [Unknown]
  - Palpitations [Unknown]
  - Dyspnoea [Unknown]
  - Fall [Unknown]
  - Muscular weakness [Unknown]
  - Tremor [Unknown]
  - Nasopharyngitis [Unknown]
  - Temperature regulation disorder [Unknown]
  - Chills [Unknown]
  - Arthralgia [Unknown]
  - Dizziness [Unknown]
  - Dehydration [Recovering/Resolving]
  - Diarrhoea [Unknown]
  - Fatigue [Unknown]
  - Nausea [Unknown]
  - Vomiting [Unknown]
